FAERS Safety Report 8592533-1 (Version None)
Quarter: 2012Q3

REPORT INFORMATION
  Report Type: 
  Country: None (occurrence: None)
  Receive Date: 20120814
  Receipt Date: 20120806
  Transmission Date: 20120928
  Serious: No
  Sender: FDA-Public Use
  Company Number: US-009507513-1208USA003869

PATIENT

DRUGS (2)
  1. PEG-INTRON [Suspect]
     Dosage: UNK
     Dates: start: 20120730
  2. PEG-INTRON [Suspect]
     Indication: HEPATITIS C
     Dosage: UNK
     Dates: start: 19950101, end: 19950106

REACTIONS (1)
  - DRUG INEFFECTIVE [None]
